FAERS Safety Report 10952730 (Version 1)
Quarter: 2015Q1

REPORT INFORMATION
  Report Type: Spontaneous
  Country: US (occurrence: None)
  Receive Date: 20150324
  Receipt Date: 20150324
  Transmission Date: 20150721
  Serious: Yes (Hospitalization)
  Sender: FDA-Public Use
  Company Number: None

PATIENT
  Age: 78 Year
  Sex: Male
  Weight: 73 kg

DRUGS (18)
  1. CARVEDILOL. [Concomitant]
     Active Substance: CARVEDILOL
  2. HARVONI [Suspect]
     Active Substance: LEDIPASVIR\SOFOSBUVIR
     Indication: HEPATITIS C
     Route: 048
     Dates: start: 20150102
  3. AZITHROMYCIN [Concomitant]
     Active Substance: AZITHROMYCIN ANHYDROUS
  4. MULTIVITAMIN [Concomitant]
     Active Substance: VITAMINS
  5. FAMOTIDE [Concomitant]
  6. RAPAMUNE [Concomitant]
     Active Substance: SIROLIMUS
  7. AZTRAONAM [Concomitant]
  8. TYLENOL [Concomitant]
     Active Substance: ACETAMINOPHEN
  9. ALBUTEROL. [Concomitant]
     Active Substance: ALBUTEROL
  10. VERAPAMIL [Concomitant]
     Active Substance: VERAPAMIL HYDROCHLORIDE
  11. POTASSIUM CHLORIDE. [Concomitant]
     Active Substance: POTASSIUM CHLORIDE
  12. LASIX [Concomitant]
     Active Substance: FUROSEMIDE
  13. VANCOMYCIN [Concomitant]
     Active Substance: VANCOMYCIN
  14. ASPIRIN. [Concomitant]
     Active Substance: ASPIRIN
  15. MYCOPHENLOATE MOFETIL [Concomitant]
  16. VALTREX [Concomitant]
     Active Substance: VALACYCLOVIR HYDROCHLORIDE
  17. HEPARIN [Concomitant]
     Active Substance: HEPARIN SODIUM
  18. RAMIPRIL. [Concomitant]
     Active Substance: RAMIPRIL

REACTIONS (4)
  - Cough [None]
  - Lung infiltration [None]
  - Pyrexia [None]
  - Pulmonary toxicity [None]

NARRATIVE: CASE EVENT DATE: 20150122
